FAERS Safety Report 11452933 (Version 3)
Quarter: 2015Q4

REPORT INFORMATION
  Report Type: Spontaneous
  Country: JP (occurrence: JP)
  Receive Date: 20150903
  Receipt Date: 20151009
  Transmission Date: 20160304
  Serious: Yes (Hospitalization)
  Sender: FDA-Public Use
  Company Number: JP-SA-2015SA131418

PATIENT
  Age: 78 Year
  Sex: Male

DRUGS (28)
  1. URIEF [Concomitant]
     Active Substance: SILODOSIN
     Dosage: STRENGTH: 4 MG
     Route: 048
  2. AVOLVE [Concomitant]
     Active Substance: DUTASTERIDE
     Dosage: STRENGTH: 0.5 MG
     Route: 048
  3. FAMOTIDINE. [Suspect]
     Active Substance: FAMOTIDINE
     Route: 042
     Dates: start: 20150824, end: 20150826
  4. ARTIST [Concomitant]
     Active Substance: CARVEDILOL
     Route: 048
  5. PREDNISOLONE. [Suspect]
     Active Substance: PREDNISOLONE
     Route: 048
     Dates: start: 20150719
  6. PREDONINE [Concomitant]
     Active Substance: PREDNISOLONE\PREDNISOLONE ACETATE\PREDNISOLONE SODIUM SUCCINATE
     Route: 048
  7. FEBURIC [Concomitant]
     Active Substance: FEBUXOSTAT
     Dosage: STRENGTH: 20 MG
     Route: 048
  8. ONETAXOTERE [Suspect]
     Active Substance: DOCETAXEL
     Indication: PROSTATE CANCER
     Route: 042
     Dates: start: 20150818
  9. DEXART [Concomitant]
     Active Substance: DEXAMETHASONE SODIUM PHOSPHATE
     Route: 042
  10. RANMARK [Concomitant]
     Active Substance: DENOSUMAB
     Route: 058
  11. CARBOHYDRATES NOS/SODIUM LACTATE/SODIUM CHLORIDE/POTASSIUM CHLORIDE [Concomitant]
     Route: 065
  12. SUNRYTHM [Concomitant]
     Active Substance: PILSICAINIDE HYDROCHLORIDE
     Route: 048
  13. SENNOSIDE [Concomitant]
     Active Substance: SENNOSIDES
     Route: 048
  14. PLAVIX [Concomitant]
     Active Substance: CLOPIDOGREL BISULFATE
     Route: 048
  15. LASIX [Concomitant]
     Active Substance: FUROSEMIDE
     Route: 048
  16. AMLODIN [Concomitant]
     Active Substance: AMLODIPINE BESYLATE
     Route: 048
  17. ARGAMATE [Concomitant]
     Active Substance: CALCIUM POLYSTYRENE SULFONATE
     Dosage: STRENGTH: 20% JELLY 25G
     Route: 048
  18. GRANISETRON [Concomitant]
     Active Substance: GRANISETRON
     Dosage: STRENGTH: 3MG/100ML
     Route: 042
  19. NORMAL SALINE [Concomitant]
     Active Substance: SODIUM CHLORIDE
     Route: 042
  20. NEUTROGIN [Concomitant]
     Active Substance: LENOGRASTIM
     Route: 042
  21. MARZULENE S [Concomitant]
     Active Substance: GLUTAMINE\SODIUM GUALENATE
     Route: 048
  22. WARFARIN [Concomitant]
     Active Substance: WARFARIN
     Dosage: STRENGTH: 0.5 MG
     Route: 048
  23. MAGLAX [Concomitant]
     Active Substance: MAGNESIUM OXIDE
     Dosage: STRENGTH: 330 MG
     Route: 048
  24. DIGOXIN. [Concomitant]
     Active Substance: DIGOXIN
     Dates: start: 20150817, end: 20150905
  25. CELECOX [Concomitant]
     Active Substance: CELECOXIB
     Dosage: STRENGTH: 100 MG
     Route: 048
  26. GLYCERIN. [Concomitant]
     Active Substance: GLYCERIN
     Route: 061
  27. ALDACTONE-A [Concomitant]
     Active Substance: SPIRONOLACTONE
     Dosage: STRENGTH: 25 MG
     Route: 048
  28. WARFARIN [Concomitant]
     Active Substance: WARFARIN
     Dosage: STRENGTH: 1 MG
     Route: 048

REACTIONS (2)
  - Delirium [Unknown]
  - Condition aggravated [Unknown]

NARRATIVE: CASE EVENT DATE: 20150826
